FAERS Safety Report 6021171-X (Version None)
Quarter: 2008Q4

REPORT INFORMATION
  Report Type: 
  Country: None (occurrence: None)
  Receive Date: 20081229
  Receipt Date: 20081217
  Transmission Date: 20090506
  Serious: Yes (Other)
  Sender: FDA-Public Use
  Company Number: US-PFIZER INC-2008156626

PATIENT
  Sex: Male

DRUGS (2)
  1. CELEBREX [Suspect]
     Indication: ARTHRITIS
     Dosage: 200 MG, 2X/DAY
  2. BACTRIM [Suspect]
     Dosage: UNK

REACTIONS (4)
  - DYSPNOEA [None]
  - HYPOAESTHESIA ORAL [None]
  - KNEE ARTHROPLASTY [None]
  - URTICARIA [None]
